FAERS Safety Report 5844788-1 (Version None)
Quarter: 2008Q3

REPORT INFORMATION
  Report Type: 
  Country: None (occurrence: None)
  Receive Date: 20080812
  Receipt Date: 20080805
  Transmission Date: 20090109
  Serious: Yes (Other)
  Sender: FDA-Public Use
  Company Number: 2008SP015981

PATIENT
  Age: 45 Year
  Sex: Female
  Weight: 90.45 kg

DRUGS (7)
  1. TEMODAR [Suspect]
     Indication: GLIOBLASTOMA MULTIFORME
     Dosage: 100 MG/M2;PO
     Route: 048
     Dates: start: 20080627, end: 20080717
  2. TEMODAR [Suspect]
     Indication: GLIOBLASTOMA MULTIFORME
     Dosage: 100 MG/M2;PO
     Route: 048
     Dates: start: 20080111
  3. CLONAZEPAM [Concomitant]
  4. KEPPRA [Concomitant]
  5. LORAZEPAM [Concomitant]
  6. MULTIVITAMINS WITH IRON [Concomitant]
  7. ZOFRAN [Concomitant]

REACTIONS (2)
  - LYMPHOPENIA [None]
  - WHITE BLOOD CELL COUNT DECREASED [None]
